FAERS Safety Report 13872557 (Version 1)
Quarter: 2017Q3

REPORT INFORMATION
  Report Type: Spontaneous
  Country: US (occurrence: US)
  Receive Date: 20170816
  Receipt Date: 20170816
  Transmission Date: 20171127
  Serious: No
  Sender: FDA-Public Use
  Company Number: US-PFIZER INC-2017352111

PATIENT

DRUGS (1)
  1. LYRICA [Suspect]
     Active Substance: PREGABALIN
     Indication: PROCEDURAL PAIN
     Dosage: 50 MG, 1X/DAY

REACTIONS (4)
  - Product use issue [Unknown]
  - Euphoric mood [Recovered/Resolved]
  - Mydriasis [Recovered/Resolved]
  - Product use in unapproved indication [Unknown]
